FAERS Safety Report 9496402 (Version 2)
Quarter: 2013Q3

REPORT INFORMATION
  Report Type: Spontaneous
  Country: CA (occurrence: CA)
  Receive Date: 20130904
  Receipt Date: 20130923
  Transmission Date: 20140515
  Serious: Yes (Life-Threatening, Hospitalization, Disabling)
  Sender: FDA-Public Use
  Company Number: CA-PURDUE-USA-2013-0105954

PATIENT
  Age: 65 Year
  Sex: Male

DRUGS (3)
  1. TRAMADOL (SIMILAR TO NDA 21-745) [Suspect]
     Indication: MUSCULOSKELETAL PAIN
     Dosage: UNK
     Route: 048
     Dates: start: 20130610, end: 20130610
  2. COVERSYL                           /00790702/ [Concomitant]
     Indication: PRODUCT USED FOR UNKNOWN INDICATION
     Route: 065
  3. BUTRANS TRANSDERMAL PATCH [Concomitant]
     Indication: PRODUCT USED FOR UNKNOWN INDICATION

REACTIONS (6)
  - Hypokinesia [Unknown]
  - Blood pressure systolic increased [Unknown]
  - Fear of death [Unknown]
  - Pruritus [Unknown]
  - Vomiting [Unknown]
  - Insomnia [Unknown]
